FAERS Safety Report 4491531-7 (Version None)
Quarter: 2004Q4

REPORT INFORMATION
  Report Type: 
  Country: None (occurrence: None)
  Receive Date: 20041101
  Receipt Date: 20041019
  Transmission Date: 20050328
  Serious: Yes (Hospitalization)
  Sender: FDA-Public Use
  Company Number: A018299

PATIENT
  Age: 61 Year
  Sex: Female
  Weight: 69 kg

DRUGS (5)
  1. PIROXICAM [Suspect]
     Indication: SCIATICA
     Dosage: SEE IMAGE
     Dates: start: 19991115
  2. THIOCOLCHICOSIDE (THIOCOLCHICOSIDE) [Suspect]
     Indication: SCIATICA
     Dosage: (TID), ORAL
     Route: 048
     Dates: start: 19991115, end: 19991201
  3. CETIRIZINE (CETIRIZINE) [Suspect]
     Indication: DERMATITIS ALLERGIC
     Dosage: (DAILY), ORAL
     Route: 048
     Dates: start: 19990501, end: 19991201
  4. LORATADINE [Suspect]
     Indication: DERMATITIS ALLERGIC
     Dosage: (DAILY), ORAL
     Route: 048
     Dates: start: 19990501, end: 19991201
  5. CERIVASTATINE (CERIVASTATIN) [Concomitant]

REACTIONS (6)
  - BLOOD BILIRUBIN INCREASED [None]
  - COOMBS NEGATIVE HAEMOLYTIC ANAEMIA [None]
  - GASTRITIS [None]
  - INTESTINAL OBSTRUCTION [None]
  - INTESTINAL SPASM [None]
  - LEUKOCYTOSIS [None]
